FAERS Safety Report 15574179 (Version 3)
Quarter: 2019Q2

REPORT INFORMATION
  Report Type: Spontaneous
  Country: JP (occurrence: JP)
  Receive Date: 20181101
  Receipt Date: 20190425
  Transmission Date: 20190711
  Serious: Yes (Other)
  Sender: FDA-Public Use
  Company Number: JP-EISAI MEDICAL RESEARCH-EC-2018-047011

PATIENT
  Age: 73 Year
  Sex: Female
  Weight: 42 kg

DRUGS (8)
  1. LENVIMA [Suspect]
     Active Substance: LENVATINIB
     Dosage: 4 MG, 2 DAYS ON, 1 DAY OFF
     Route: 048
     Dates: start: 201808, end: 2018
  2. LENVIMA [Suspect]
     Active Substance: LENVATINIB
     Route: 048
     Dates: start: 20180925, end: 20181106
  3. LENVIMA [Suspect]
     Active Substance: LENVATINIB
     Indication: HEPATOCELLULAR CARCINOMA
     Route: 048
     Dates: start: 20180426, end: 20180507
  4. LENVIMA [Suspect]
     Active Substance: LENVATINIB
     Route: 048
     Dates: start: 2018, end: 20180726
  5. LENVIMA [Suspect]
     Active Substance: LENVATINIB
     Route: 048
     Dates: start: 20180727, end: 201808
  6. LENVIMA [Suspect]
     Active Substance: LENVATINIB
     Route: 048
     Dates: start: 20180604, end: 2018
  7. LENVIMA [Suspect]
     Active Substance: LENVATINIB
     Dosage: 8 MG, 5 DAYS ON, 2 DAYS OFF
     Route: 048
     Dates: start: 2018, end: 20180924
  8. LENVIMA [Suspect]
     Active Substance: LENVATINIB
     Dosage: 4 MG, 5 DAYS ON, 2 DAYS OFF
     Route: 048
     Dates: start: 20181113

REACTIONS (3)
  - Malaise [Recovered/Resolved]
  - Pancytopenia [Recovered/Resolved]
  - Palmar-plantar erythrodysaesthesia syndrome [Unknown]

NARRATIVE: CASE EVENT DATE: 2018
